FAERS Safety Report 7325999 (Version 13)
Quarter: 2012Q4

REPORT INFORMATION
  Report Type: 
  Country: CA (occurrence: CA)
  Receive Date: 20100319
  Receipt Date: 20121102
  Transmission Date: 20130627
  Serious: Yes (Hospitalization, Other)
  Sender: FDA-Public Use
  Company Number: PHHY2010CA15250

PATIENT
  Sex: Female

DRUGS (4)
  1. SANDOSTATIN LAR [Suspect]
     Indication: ACROMEGALY
     Dosage: 40 mg once a month
     Route: 030
     Dates: start: 20070123, end: 20071129
  2. SANDOSTATIN LAR [Suspect]
     Dosage: 10 mg, Every 10 days
     Route: 030
  3. SANDOSTATIN LAR [Suspect]
     Dosage: 40 mg, every 4 weeks
     Route: 030
  4. CHEMOTHERAPEUTICS NOS [Concomitant]
     Dosage: UNK UKN, UNK

REACTIONS (13)
  - Pneumonia [Unknown]
  - Pleural effusion [Recovering/Resolving]
  - Chest pain [Recovering/Resolving]
  - Malignant neoplasm progression [Unknown]
  - Visual acuity reduced [Unknown]
  - Pulmonary embolism [Unknown]
  - Terminal state [Unknown]
  - Metastases to abdominal cavity [Unknown]
  - Pancreatic neoplasm [Unknown]
  - Neoplasm recurrence [Unknown]
  - Blood pressure increased [Unknown]
  - Nausea [Unknown]
  - Injection site pain [Unknown]
